FAERS Safety Report 9553907 (Version 3)
Quarter: 2013Q4

REPORT INFORMATION
  Report Type: Spontaneous
  Country: GB (occurrence: GB)
  Receive Date: 20130925
  Receipt Date: 20131011
  Transmission Date: 20140711
  Serious: Yes (Life-Threatening, Other)
  Sender: FDA-Public Use
  Company Number: PHFR2013GB004969

PATIENT
  Age: 27 Year
  Sex: Male

DRUGS (5)
  1. CLOZARIL [Suspect]
     Indication: SCHIZOPHRENIA
     Dosage: UNK
     Route: 048
     Dates: start: 20130423
  2. CLOZARIL [Suspect]
     Dosage: UNK
  3. COCAINE [Suspect]
     Dosage: COPIOUS AMOUNT
  4. HALOPERIDOL [Concomitant]
     Indication: PSYCHOTIC DISORDER
     Dosage: 15 MG, UNK
     Route: 048
     Dates: start: 20130929, end: 20131004
  5. DIAZEPAM [Concomitant]
     Indication: AGITATION
     Dosage: 10 MG, UNK
     Route: 048
     Dates: start: 20130929

REACTIONS (5)
  - Overdose [Unknown]
  - Tachycardia [Recovered/Resolved]
  - Heart rate increased [Unknown]
  - Hyperhidrosis [Unknown]
  - Agitation [Unknown]
